FAERS Safety Report 25865708 (Version 1)
Quarter: 2025Q3

REPORT INFORMATION
  Report Type: Spontaneous
  Country: CA (occurrence: CA)
  Receive Date: 20250930
  Receipt Date: 20250930
  Transmission Date: 20251021
  Serious: Yes (Other)
  Sender: PFIZER
  Company Number: CA-PFIZER INC-202500193995

PATIENT
  Age: 59 Year
  Sex: Female

DRUGS (2)
  1. METHOTREXATE SODIUM [Suspect]
     Active Substance: METHOTREXATE SODIUM
  2. FOLIC ACID [Concomitant]
     Active Substance: FOLIC ACID

REACTIONS (3)
  - Bell^s palsy [Unknown]
  - Herpes simplex [Unknown]
  - Rash [Unknown]

NARRATIVE: CASE EVENT DATE: 20250701
